FAERS Safety Report 16350358 (Version 2)
Quarter: 2019Q2

REPORT INFORMATION
  Report Type: Report from Study
  Country: NL (occurrence: NL)
  Receive Date: 20190524
  Receipt Date: 20190529
  Transmission Date: 20190711
  Serious: Yes (Hospitalization, Other)
  Sender: FDA-Public Use
  Company Number: NL-AMGEN-NLDSL2019078499

PATIENT
  Age: 80 Year
  Sex: Female

DRUGS (12)
  1. LOSARTAN. [Concomitant]
     Active Substance: LOSARTAN
     Dosage: 50 MILLIGRAM, QD
     Route: 048
  2. DOXYCYCLINE. [Concomitant]
     Active Substance: DOXYCYCLINE
     Dosage: 100 MILLIGRAM
     Route: 065
  3. ESCITALOPRAM [Concomitant]
     Active Substance: ESCITALOPRAM OXALATE
     Dosage: 20 MILLIGRAM PER MILLILITRE, QD (15 DROPS EVERY DAY)
  4. TAMOXIFEN [Concomitant]
     Active Substance: TAMOXIFEN
     Dosage: 40 MILLIGRAM, QD
  5. XGEVA [Suspect]
     Active Substance: DENOSUMAB
     Indication: PROPHYLAXIS
     Dosage: 120 MILLIGRAM PER MILLILITRE (IN 1.7ML), Q4WK
     Route: 065
  6. ACETYLSALICYLIC ACID [Concomitant]
     Active Substance: ASPIRIN
     Dosage: 80 MILLIGRAM, QD
  7. CALCIUM CARBONATE W/COLECALCIFEROL [Concomitant]
     Active Substance: CALCIUM CARBONATE\CHOLECALCIFEROL
     Dosage: 2.5G/880IE (1000MG CA), QD
  8. FENTANYL. [Concomitant]
     Active Substance: FENTANYL
     Dosage: 12 MICROGRAM PER HOUR, TID (1 PLASTER THRICE A DAY)
  9. FUROSEMIDE. [Concomitant]
     Active Substance: FUROSEMIDE
     Dosage: 40 MILLIGRAM, BID
  10. OMEPRAZOLE. [Concomitant]
     Active Substance: OMEPRAZOLE
     Dosage: 40 MILLIGRAM, BID
  11. HYDROCORTISON ACETATE [Concomitant]
     Dosage: 10 MILLIGRAM PER GRAM, QD
  12. SALBUTAMOL [Concomitant]
     Active Substance: ALBUTEROL
     Dosage: 200 MICROGRAM, TID
     Route: 055

REACTIONS (1)
  - Pruritus [Unknown]
